FAERS Safety Report 16995605 (Version 1)
Quarter: 2019Q4

REPORT INFORMATION
  Report Type: Spontaneous
  Country: US (occurrence: US)
  Receive Date: 20190923
  Receipt Date: 20190923
  Transmission Date: 20200122
  Serious: Yes (Other)
  Sender: FDA-Public Use
  Company Number: None

PATIENT
  Age: 54 Year
  Sex: Female
  Weight: 97.52 kg

DRUGS (6)
  1. ZOLPIDEM [Suspect]
     Active Substance: ZOLPIDEM TARTRATE
     Indication: INSOMNIA
     Dosage: ?          QUANTITY:1 PILL;?
     Route: 048
     Dates: start: 20181023, end: 20190614
  2. FEXOFENADINE [Concomitant]
     Active Substance: FEXOFENADINE HYDROCHLORIDE
  3. ADVAIR DISKUS [Concomitant]
     Active Substance: FLUTICASONE PROPIONATE\SALMETEROL XINAFOATE
  4. FERROUS SULFATE. [Concomitant]
     Active Substance: FERROUS SULFATE
  5. LEVOTHYROXINE. [Concomitant]
     Active Substance: LEVOTHYROXINE
  6. 1 PER DAY WOMEN^S VITAMIN [Concomitant]

REACTIONS (9)
  - Hallucination [None]
  - Thinking abnormal [None]
  - Drug withdrawal syndrome [None]
  - Paranoia [None]
  - Sensory disturbance [None]
  - Sexual dysfunction [None]
  - Negative thoughts [None]
  - Suicidal ideation [None]
  - Headache [None]

NARRATIVE: CASE EVENT DATE: 20190702
